FAERS Safety Report 12696058 (Version 4)
Quarter: 2016Q4

REPORT INFORMATION
  Report Type: Report from Study
  Country: CA (occurrence: CA)
  Receive Date: 20160829
  Receipt Date: 20161103
  Transmission Date: 20170207
  Serious: Yes (Hospitalization, Other)
  Sender: FDA-Public Use
  Company Number: CA-TAKEDA-2015TUS018257

PATIENT
  Age: 38 Year
  Sex: Male
  Weight: 64 kg

DRUGS (8)
  1. VEDOLIZUMAB [Suspect]
     Active Substance: VEDOLIZUMAB
     Indication: CROHN^S DISEASE
     Dosage: 300 MG, UNK
     Route: 042
     Dates: start: 20150915
  2. FENTANYL. [Concomitant]
     Active Substance: FENTANYL
     Dosage: 37.5 ?G, UNK
     Dates: start: 201609
  3. DILAUDID [Concomitant]
     Active Substance: HYDROMORPHONE HYDROCHLORIDE
     Dosage: 2 MG, UNK
     Dates: start: 201609
  4. ZOPICLONE [Concomitant]
     Active Substance: ZOPICLONE
  5. ATIVAN [Concomitant]
     Active Substance: LORAZEPAM
     Dosage: UNK
     Dates: start: 201609
  6. VEDOLIZUMAB [Suspect]
     Active Substance: VEDOLIZUMAB
     Dosage: 300 MG, Q4WEEKS
     Route: 042
     Dates: start: 20160315
  7. ALLOPURINOL. [Concomitant]
     Active Substance: ALLOPURINOL
     Dosage: UNK
  8. TECTA [Suspect]
     Active Substance: PANTOPRAZOLE MAGNESIUM
     Indication: PRODUCT USED FOR UNKNOWN INDICATION
     Dosage: 40 MG, QD
     Route: 065
     Dates: start: 201609

REACTIONS (9)
  - Crohn^s disease [Unknown]
  - Weight fluctuation [Recovered/Resolved]
  - Haemoglobin decreased [Unknown]
  - Blood pressure decreased [Unknown]
  - Off label use [Unknown]
  - Cachexia [Unknown]
  - Off label use [Unknown]
  - Intestinal obstruction [Unknown]
  - Blood sodium decreased [Unknown]

NARRATIVE: CASE EVENT DATE: 20150915
